FAERS Safety Report 12391026 (Version 1)
Quarter: 2016Q2

REPORT INFORMATION
  Report Type: Spontaneous
  Country: FR (occurrence: FR)
  Receive Date: 20160520
  Receipt Date: 20160520
  Transmission Date: 20160815
  Serious: Yes (Hospitalization)
  Sender: FDA-Public Use
  Company Number: FR-SA-2016SA095864

PATIENT
  Age: 50 Year
  Sex: Female
  Weight: 53 kg

DRUGS (3)
  1. LYSANXIA [Suspect]
     Active Substance: PRAZEPAM
     Route: 048
     Dates: start: 20150919, end: 20150919
  2. STILNOX [Suspect]
     Active Substance: ZOLPIDEM TARTRATE
     Route: 048
     Dates: start: 20150919, end: 20150919
  3. ATARAX [Suspect]
     Active Substance: HYDROXYZINE\HYDROXYZINE HYDROCHLORIDE
     Route: 048
     Dates: start: 20150919, end: 20150919

REACTIONS (2)
  - Neurological decompensation [Recovered/Resolved]
  - Pneumonia aspiration [Recovered/Resolved]

NARRATIVE: CASE EVENT DATE: 20150919
